FAERS Safety Report 13004945 (Version 4)
Quarter: 2022Q4

REPORT INFORMATION
  Report Type: Spontaneous
  Country: FR (occurrence: FR)
  Receive Date: 20161207
  Receipt Date: 20221121
  Transmission Date: 20230113
  Serious: Yes (Death, Life-Threatening, Hospitalization, Other)
  Sender: FDA-Public Use
  Company Number: None

PATIENT
  Age: 34 Year
  Sex: Male

DRUGS (10)
  1. QUETIAPINE [Suspect]
     Active Substance: QUETIAPINE
     Indication: Bipolar disorder
     Dosage: 600 MILLIGRAM, QD
     Route: 048
     Dates: start: 20120605
  2. TRAMADOL [Suspect]
     Active Substance: TRAMADOL
     Indication: Abdominal pain
     Dosage: 100 MILLIGRAM
     Route: 065
     Dates: start: 20120625
  3. MORPHINE [Suspect]
     Active Substance: MORPHINE
     Indication: Abdominal pain
     Dosage: UNK
     Route: 042
     Dates: start: 20120625
  4. RISPERIDONE [Suspect]
     Active Substance: RISPERIDONE
     Indication: Bipolar disorder
     Dosage: UNK
     Route: 065
  5. TROPATEPINE [Suspect]
     Active Substance: TROPATEPINE
     Indication: Bipolar disorder
     Dosage: 10 MILLIGRAM, QD
     Route: 065
     Dates: start: 20120605
  6. DIAZEPAM [Suspect]
     Active Substance: DIAZEPAM
     Indication: Bipolar disorder
     Dosage: 30 MILLIGRAM, QD
     Route: 065
  7. VALPROIC ACID [Suspect]
     Active Substance: VALPROIC ACID
     Indication: Bipolar disorder
     Dosage: 1000 MILLIGRAM, QD
     Route: 065
  8. LOXAPINE [Suspect]
     Active Substance: LOXAPINE
     Indication: Bipolar disorder
     Dosage: 275 MILLIGRAM, QD
     Route: 048
     Dates: start: 20120614
  9. LOXAPINE [Suspect]
     Active Substance: LOXAPINE
     Dosage: 375 MG, (275+100 MG ; AS REQUIRED)
     Route: 048
     Dates: start: 20120614
  10. LOXAPINE [Suspect]
     Active Substance: LOXAPINE
     Dosage: 100 MILLIGRAM
     Route: 030
     Dates: start: 20120625

REACTIONS (15)
  - Subileus [Fatal]
  - Large intestine perforation [Fatal]
  - Metabolic acidosis [Fatal]
  - Septic shock [Fatal]
  - Gastric haemorrhage [Fatal]
  - Multiple organ dysfunction syndrome [Fatal]
  - Cardiac arrest [Fatal]
  - Intestinal ischaemia [Fatal]
  - Necrotising colitis [Fatal]
  - Staphylococcal bacteraemia [Fatal]
  - Candida infection [Fatal]
  - Pneumonia pseudomonal [Fatal]
  - Drug interaction [Unknown]
  - Erectile dysfunction [Unknown]
  - Libido decreased [Unknown]

NARRATIVE: CASE EVENT DATE: 20120625
